FAERS Safety Report 5012795-7 (Version None)
Quarter: 2006Q2

REPORT INFORMATION
  Report Type: 
  Country: None (occurrence: None)
  Receive Date: 20060530
  Receipt Date: 20060310
  Transmission Date: 20061013
  Serious: No
  Sender: FDA-Public Use
  Company Number: US-BRISTOL-MYERS SQUIBB COMPANY-13310792

PATIENT
  Sex: Female
  Weight: 77 kg

DRUGS (5)
  1. ERBITUX [Suspect]
     Indication: COLON CANCER
     Dosage: WEEKLY DOSING
     Route: 042
     Dates: start: 20060207, end: 20060207
  2. IRINOTECAN HCL [Concomitant]
     Route: 042
  3. ZOFRAN [Concomitant]
     Indication: PREMEDICATION
     Route: 042
  4. BENADRYL [Concomitant]
     Indication: PREMEDICATION
     Route: 042
  5. DECADRON SRC [Concomitant]
     Indication: PREMEDICATION
     Route: 042

REACTIONS (1)
  - RASH [None]
